FAERS Safety Report 18041808 (Version 1)
Quarter: 2020Q3

REPORT INFORMATION
  Report Type: Spontaneous
  Country: US (occurrence: US)
  Receive Date: 20200720
  Receipt Date: 20200720
  Transmission Date: 20201103
  Serious: No
  Sender: FDA-Public Use
  Company Number: US-TEVA-2020-US-1803083

PATIENT
  Age: 88 Year
  Sex: Male

DRUGS (1)
  1. BUDESONIDE TEVA [Suspect]
     Active Substance: BUDESONIDE
     Indication: ASTHMA
     Dosage: 0.5 MG / 2 ML
     Route: 055
     Dates: start: 202006

REACTIONS (4)
  - Chest discomfort [Unknown]
  - Product physical issue [Unknown]
  - Obstructive airways disorder [Unknown]
  - Drug ineffective [Unknown]

NARRATIVE: CASE EVENT DATE: 202007
